FAERS Safety Report 8069113-X (Version None)
Quarter: 2012Q1

REPORT INFORMATION
  Report Type: 
  Country: None (occurrence: None)
  Receive Date: 20120125
  Receipt Date: 20120117
  Transmission Date: 20120608
  Serious: No
  Sender: FDA-Public Use
  Company Number: US-PFIZER INC-2012014776

PATIENT
  Sex: Female
  Weight: 63.492 kg

DRUGS (11)
  1. LISINOPRIL [Concomitant]
     Indication: BLOOD PRESSURE ABNORMAL
     Dosage: 10 MG, 2X/DAY
  2. SIMVASTATIN [Concomitant]
     Indication: BLOOD CHOLESTEROL ABNORMAL
     Dosage: 40 MG, DAILY
  3. FOLIC ACID [Concomitant]
     Indication: CARDIAC DISORDER
     Dosage: 800 MG, DAILY
  4. FOLIC ACID [Concomitant]
     Indication: FOLATE DEFICIENCY
  5. VITAMIN B-12 [Concomitant]
     Indication: CARDIOVASCULAR DISORDER
     Dosage: 1000 MG, DAILY
  6. FOLIC ACID [Concomitant]
     Indication: METABOLIC DISORDER
  7. CELEBREX [Suspect]
     Indication: RHEUMATOID ARTHRITIS
     Dosage: 200 MG, 2X/DAY
     Route: 048
  8. REMICADE [Concomitant]
     Indication: RHEUMATOID ARTHRITIS
     Dosage: UNK,EVERY 6 WEEKS
  9. METHOTREXATE [Concomitant]
     Indication: RHEUMATOID ARTHRITIS
     Dosage: 2.5 MG, 6X/WEEK
  10. VITAMIN D [Concomitant]
     Indication: IMMUNE SYSTEM DISORDER
     Dosage: 1000 MG, DAILY
  11. ASCORBIC ACID [Concomitant]
     Indication: IMMUNE SYSTEM DISORDER
     Dosage: 500 MG, DAILY

REACTIONS (1)
  - PAIN [None]
